FAERS Safety Report 15778585 (Version 4)
Quarter: 2019Q1

REPORT INFORMATION
  Report Type: Spontaneous
  Country: US (occurrence: US)
  Receive Date: 20181231
  Receipt Date: 20190320
  Transmission Date: 20190417
  Serious: Yes (Other)
  Sender: FDA-Public Use
  Company Number: US-PFIZER INC-2017392718

PATIENT
  Age: 47 Year
  Sex: Female

DRUGS (2)
  1. SOMAVERT [Suspect]
     Active Substance: PEGVISOMANT
     Indication: GIGANTISM
  2. SOMAVERT [Suspect]
     Active Substance: PEGVISOMANT
     Indication: ACROMEGALY
     Dosage: 20 MG, DAILY
     Route: 058
     Dates: start: 2008

REACTIONS (4)
  - Injection site indentation [Unknown]
  - Insulin-like growth factor increased [Unknown]
  - Stress [Unknown]
  - Product dose omission [Unknown]

NARRATIVE: CASE EVENT DATE: 2008
